FAERS Safety Report 9314103 (Version 1)
Quarter: 2013Q2

REPORT INFORMATION
  Report Type: Spontaneous
  Country: US (occurrence: US)
  Receive Date: 20130529
  Receipt Date: 20130529
  Transmission Date: 20140414
  Serious: Yes (Hospitalization, Other)
  Sender: FDA-Public Use
  Company Number: US-SANOFI-AVENTIS-2013SA054053

PATIENT
  Age: 67 Year
  Sex: Male

DRUGS (5)
  1. LANTUS SOLOSTAR [Suspect]
     Indication: TYPE 2 DIABETES MELLITUS
     Dosage: DOCTOR IN THE HOSPITAL SAID TO TAKE 36 UNITS AT 11AM DOSE:36 UNIT(S)
     Route: 058
  2. LANTUS SOLOSTAR [Suspect]
     Indication: TYPE 2 DIABETES MELLITUS
     Dosage: THERAPY START DATE - MONTH AND A HALF DOSE:18 UNIT(S)
     Route: 058
  3. SOLOSTAR [Suspect]
     Indication: TYPE 2 DIABETES MELLITUS
     Dosage: DOCTOR IN THE HOSPITAL SAID TO TAKE 36 UNITS AT 11AM
  4. SOLOSTAR [Suspect]
     Indication: TYPE 2 DIABETES MELLITUS
     Dosage: THERAPY START DATE - MONTH AND A HALF
  5. METFORMIN [Concomitant]

REACTIONS (3)
  - Cardiac disorder [Unknown]
  - Blood glucose decreased [Unknown]
  - Overdose [Unknown]
